FAERS Safety Report 9528934 (Version 3)
Quarter: 2013Q4

REPORT INFORMATION
  Report Type: Spontaneous
  Country: BR (occurrence: BR)
  Receive Date: 20130917
  Receipt Date: 20131105
  Transmission Date: 20140711
  Serious: Yes (Other)
  Sender: FDA-Public Use
  Company Number: BR-ALLERGAN-1313888US

PATIENT
  Sex: Female

DRUGS (10)
  1. ALPHAGAN Z [Suspect]
     Indication: GLAUCOMA
     Dosage: UNK
     Route: 047
  2. ALPHAGAN Z [Suspect]
     Dosage: UNK
     Route: 047
     Dates: start: 20130827, end: 20130909
  3. LEXOTAN [Concomitant]
     Dosage: ONCE A DAY
  4. ENALAPRIL [Concomitant]
     Dosage: TWICE A DAY
  5. ATENOLOL [Concomitant]
     Dosage: ONCE A DAY
  6. PURAN T 100 [Concomitant]
     Dosage: ONCE A DAY
  7. ATORVASTATINA [Concomitant]
     Dosage: TWICE A DAY
  8. OMEPRAZOLE [Concomitant]
     Dosage: ONCE A DAY
  9. XANTINON COMPLEX [Concomitant]
     Dosage: TWICE A DAY
  10. DOLAMIN [Concomitant]
     Dosage: EVERY SIX HOURS

REACTIONS (5)
  - Dyspnoea [Recovered/Resolved]
  - Chest pain [Recovered/Resolved]
  - Dizziness [Recovered/Resolved]
  - Nausea [Recovered/Resolved]
  - Hypertension [Unknown]
